FAERS Safety Report 18909221 (Version 1)
Quarter: 2021Q1

REPORT INFORMATION
  Report Type: Spontaneous
  Country: US (occurrence: US)
  Receive Date: 20210217
  Receipt Date: 20210217
  Transmission Date: 20210420
  Serious: Yes (Hospitalization)
  Sender: FDA-Public Use
  Company Number: None

PATIENT
  Age: 75 Year
  Sex: Male

DRUGS (1)
  1. GABAPENTIN. [Suspect]
     Active Substance: GABAPENTIN
     Indication: NEUROPATHY PERIPHERAL
     Dates: start: 20200518

REACTIONS (5)
  - Dysuria [None]
  - Asthenia [None]
  - Pain [None]
  - Sedation [None]
  - Therapy change [None]

NARRATIVE: CASE EVENT DATE: 20201113
